FAERS Safety Report 17314627 (Version 2)
Quarter: 2020Q2

REPORT INFORMATION
  Report Type: Report from Study
  Country: US (occurrence: US)
  Receive Date: 20200124
  Receipt Date: 20200401
  Transmission Date: 20200713
  Serious: Yes (Other)
  Sender: FDA-Public Use
  Company Number: US-SA-2020SA017118

PATIENT
  Age: 56 Year
  Sex: Female

DRUGS (1)
  1. TERIFLUNOMIDE. [Suspect]
     Active Substance: TERIFLUNOMIDE
     Indication: MULTIPLE SCLEROSIS
     Dosage: 14 MG, QD
     Route: 048
     Dates: start: 20190312, end: 20200301

REACTIONS (4)
  - Depression [Unknown]
  - Glaucoma [Unknown]
  - Crying [Unknown]
  - Multiple sclerosis [Not Recovered/Not Resolved]
